FAERS Safety Report 8844882 (Version 3)
Quarter: 2013Q1

REPORT INFORMATION
  Report Type: Spontaneous
  Country: US (occurrence: US)
  Receive Date: 20121017
  Receipt Date: 20130308
  Transmission Date: 20140127
  Serious: No
  Sender: FDA-Public Use
  Company Number: US-009507513-1210USA006600

PATIENT
  Age: 7 Year
  Sex: Female
  Weight: 29.48 kg

DRUGS (3)
  1. NASONEX [Suspect]
     Indication: ADENOIDAL HYPERTROPHY
     Dosage: 2 DF, QD
     Route: 045
     Dates: start: 20121002, end: 201301
  2. SINGULAIR [Concomitant]
     Route: 048
  3. ZYRTEC [Concomitant]

REACTIONS (1)
  - Epistaxis [Recovered/Resolved]
